FAERS Safety Report 21511269 (Version 3)
Quarter: 2022Q4

REPORT INFORMATION
  Report Type: Report from Study
  Country: US (occurrence: US)
  Receive Date: 20221027
  Receipt Date: 20221111
  Transmission Date: 20230113
  Serious: Yes (Death)
  Sender: FDA-Public Use
  Company Number: US-ABBVIE-4176055

PATIENT
  Sex: Male

DRUGS (29)
  1. VENCLEXTA [Suspect]
     Active Substance: VENETOCLAX
     Indication: Chronic lymphocytic leukaemia
     Dosage: TAKE 2 TABLET(S) BY MOUTH (200MG) DAILY,?FORM STRENGTH: 100 MILLIGRAM
     Route: 048
  2. VENCLEXTA [Suspect]
     Active Substance: VENETOCLAX
     Indication: Chronic lymphocytic leukaemia
     Dosage: THEN 100 MG FOR 7 DAYS,?FORM STRENGTH: 100 MILLIGRAM
     Route: 048
  3. VENCLEXTA [Suspect]
     Active Substance: VENETOCLAX
     Indication: Chronic lymphocytic leukaemia
     Dosage: TAKE 20 MG FOR 7 DAYS,?FORM STRENGTH: 10 MILLIGRAM
     Route: 048
  4. VENCLEXTA [Suspect]
     Active Substance: VENETOCLAX
     Indication: Chronic lymphocytic leukaemia
     Dosage: THEN 50MG FOR 7 DAYS,?FORM STRENGTH: 50 MILLIGRAM
     Route: 048
  5. VENCLEXTA [Suspect]
     Active Substance: VENETOCLAX
     Indication: Chronic lymphocytic leukaemia
     Dosage: THEN 200 MG DAILY FOR 7 DAYS,?FORM STRENGTH: 100 MILLIGRAM
     Route: 048
  6. VENCLEXTA [Suspect]
     Active Substance: VENETOCLAX
     Indication: Chronic lymphocytic leukaemia
     Dosage: THEN, 200MG(2X100MG TABS) DAILY WEEK 4.
     Route: 048
  7. VENCLEXTA [Suspect]
     Active Substance: VENETOCLAX
     Indication: Chronic lymphocytic leukaemia
     Dosage: THEN 100 MG FOR 7 DAYS
     Route: 048
  8. VENCLEXTA [Suspect]
     Active Substance: VENETOCLAX
     Indication: Chronic lymphocytic leukaemia
     Dosage: 1 TABLET BY MOUTH (10 MG) DAILY WITH FOOD FOR 7 DAYS
     Route: 048
  9. VENCLEXTA [Suspect]
     Active Substance: VENETOCLAX
     Indication: Chronic lymphocytic leukaemia
     Dosage: 50MG(1X50MG TAB) DAILY BY MOUTH WEEK 2.
     Route: 048
  10. VENCLEXTA [Suspect]
     Active Substance: VENETOCLAX
     Indication: Chronic lymphocytic leukaemia
     Dosage: TAKE 20 MG FOR 7 DAYS
     Route: 048
  11. OBINUTUZUMAB [Suspect]
     Active Substance: OBINUTUZUMAB
     Indication: Chronic lymphocytic leukaemia
     Route: 065
     Dates: start: 20170918
  12. VENOFER [Concomitant]
     Active Substance: IRON SUCROSE
     Indication: Product used for unknown indication
     Dosage: DOSE- 50 MG/ PATIENT TO SELF ADMINISTER DURING HOME HD?50MG IRON/2.5ML SOLN INJECTION
     Route: 042
  13. Reno [Concomitant]
     Indication: Product used for unknown indication
     Dosage: TAKE 1 CAPSULE, FORM STRENGTH: 1 MILLIGRAM
     Route: 048
  14. PHOSLO [Concomitant]
     Active Substance: CALCIUM ACETATE
     Indication: Product used for unknown indication
     Dosage: TIME INTERVAL: 0.33333333 DAYS: TAKE 1 CAPSULE, FORM STRENGTH: 667 MILLIGRAM
     Route: 048
  15. TOPROL XL [Concomitant]
     Active Substance: METOPROLOL SUCCINATE
     Indication: Product used for unknown indication
     Dosage: TAKE 1 TABLET,?XL 50 MG 24HR TABLET,?FORM STRENGTH: 50 MILLIGRAM
     Route: 048
  16. LIPITOR [Concomitant]
     Active Substance: ATORVASTATIN CALCIUM
     Indication: Product used for unknown indication
     Dosage: TAKE 1 TAB, FORM STRENGTH: 10 MILLIGRAM
     Route: 048
  17. LASIX [Concomitant]
     Active Substance: FUROSEMIDE
     Indication: Product used for unknown indication
     Dosage: FORM STRENGTH: 80 MILLIGRAM
     Route: 048
  18. EPIPEN [Concomitant]
     Active Substance: EPINEPHRINE
     Indication: Product used for unknown indication
     Dosage: DOSE- 0.3 ML 0.3MG/0.3ML AUTO-INJECTOR
     Route: 030
  19. EPIPEN [Concomitant]
     Active Substance: EPINEPHRINE
     Indication: Product used for unknown indication
     Dosage: DOSE- 0.3 ML 0.3MG/0.3ML AUTO-INJECTOR,?FORM STRENGTH: 0.3 MILLILITRE(S)
     Route: 030
  20. SENSIPAR [Concomitant]
     Active Substance: CINACALCET HYDROCHLORIDE
     Indication: Product used for unknown indication
     Dosage: FORM STRENGTH: 30 MILLIGRAM
     Route: 048
  21. ROCALTROL [Concomitant]
     Active Substance: CALCITRIOL
     Indication: Product used for unknown indication
     Dosage: FORM STRENGTH: 0.25 MILLIGRAM
     Route: 048
  22. PROVENTIL HFA [Concomitant]
     Active Substance: ALBUTEROL SULFATE
     Indication: Wheezing
     Dosage: 90MCG/ACTUATION INHALER   -  INHALE 2 PUFFS AS NEEDED,?FORM STRENGTH: 90 MILLIGRAM
     Route: 055
  23. ZOVIRAX [Concomitant]
     Active Substance: ACYCLOVIR
     Indication: Product used for unknown indication
     Dosage: FORM STRENGTH: 200 MILLIGRAM
     Route: 048
  24. SALONPAS PAIN RELIEF [Concomitant]
     Active Substance: MENTHOL\METHYL SALICYLATE
     Indication: Product used for unknown indication
     Dosage: APPLY 1 PATCH, 4% PATCH, FORM STRENGTH: 4 MILLIGRAM
  25. CARDIZEM [Concomitant]
     Active Substance: DILTIAZEM HYDROCHLORIDE
     Indication: Product used for unknown indication
     Dosage: FORM STRENGTH: 120 MILLIGRAM
     Route: 048
  26. COUMADIN [Concomitant]
     Active Substance: WARFARIN SODIUM
     Indication: Product used for unknown indication
     Dosage: TAKE 1 TABLET, FORM STRENGTH: 5 MILLIGRAM
     Route: 048
  27. PROTONIX [Concomitant]
     Active Substance: PANTOPRAZOLE SODIUM
     Indication: Product used for unknown indication
     Dosage: TAKE 1 TABLET, FORM STRENGTH: 40 MILLIGRAM
     Route: 048
  28. MIRCERA [Concomitant]
     Active Substance: METHOXY POLYETHYLENE GLYCOL-EPOETIN BETA
     Indication: Product used for unknown indication
     Route: 058
  29. ULTRAM [Concomitant]
     Active Substance: TRAMADOL HYDROCHLORIDE
     Indication: Pain
     Dosage: TAKE 0.5 TABLETS, FORM STRENGTH: 50 MILLIGRAM
     Route: 048

REACTIONS (1)
  - Death [Fatal]
